FAERS Safety Report 9100917 (Version 1)
Quarter: 2013Q1

REPORT INFORMATION
  Report Type: Spontaneous
  Country: US (occurrence: US)
  Receive Date: 20130215
  Receipt Date: 20130215
  Transmission Date: 20140127
  Serious: Yes (Death)
  Sender: FDA-Public Use
  Company Number: PHEH2013US003689

PATIENT
  Sex: Female

DRUGS (2)
  1. RECLAST [Suspect]
     Dosage: UNK
     Route: 042
     Dates: start: 20090325
  2. RECLAST [Suspect]
     Dosage: UNK
     Route: 042
     Dates: start: 20101118

REACTIONS (4)
  - Pneumonia [Fatal]
  - Cerebrovascular accident [Fatal]
  - Myelodysplastic syndrome [Fatal]
  - Atrial fibrillation [Fatal]
